FAERS Safety Report 14294756 (Version 3)
Quarter: 2018Q1

REPORT INFORMATION
  Report Type: Report from Study
  Country: None (occurrence: IL)
  Receive Date: 20171218
  Receipt Date: 20180108
  Transmission Date: 20180509
  Serious: No
  Sender: FDA-Public Use
  Company Number: IL-ABBVIE-17K-082-2165859-00

PATIENT
  Age: 75 Year
  Sex: Male

DRUGS (8)
  1. DUODOPA [Suspect]
     Active Substance: CARBIDOPA\LEVODOPA
     Indication: PARKINSON^S DISEASE
     Dosage: MD:11.0ML, CONTINUES RATE: 2.7ML/HOUR, NIGHT DOSE:1.0ML
     Route: 050
     Dates: start: 20171109, end: 2017
  2. SEROQUEL [Concomitant]
     Active Substance: QUETIAPINE FUMARATE
     Indication: PRODUCT USED FOR UNKNOWN INDICATION
  3. DUODOPA [Suspect]
     Active Substance: CARBIDOPA\LEVODOPA
     Dosage: CURRENT MD- 11 ML, CURRENT FIXED RATE- 3.0 ML, CURRENT ED- 1 ML.
     Route: 050
     Dates: start: 2017, end: 2017
  4. DUODOPA [Suspect]
     Active Substance: CARBIDOPA\LEVODOPA
     Dosage: MD- 7.0 ML, FIXED RATE DAY - 3.0 ML/ HOUR, CURRENT ED 1.0 ML, RATE NIGHT - 1.8 ML/ HOUR
     Route: 050
     Dates: start: 2017, end: 2017
  5. DUODOPA [Suspect]
     Active Substance: CARBIDOPA\LEVODOPA
     Dosage: CURRENT FIXED RATE DAY - 2.8 ML/HOUR
     Route: 050
     Dates: start: 2017, end: 2017
  6. DUODOPA [Suspect]
     Active Substance: CARBIDOPA\LEVODOPA
     Dosage: MD 4.5ML, DAY CONTINUES RATE 2.5ML/HOUR, NIGHT CONTINUES RATE 1.8 ML/HOUR,?ED 1.0
     Route: 050
     Dates: start: 2017, end: 2017
  7. DUODOPA [Suspect]
     Active Substance: CARBIDOPA\LEVODOPA
     Dosage: MD 5.0ML, DAY CONTINUES RATE 2.7ML/HR, NIGHT CONTINUES RATE 2.0ML/HR, ED 1.3.
     Route: 050
     Dates: start: 2017
  8. SINEMET [Concomitant]
     Active Substance: CARBIDOPA\LEVODOPA
     Indication: PRODUCT USED FOR UNKNOWN INDICATION

REACTIONS (11)
  - On and off phenomenon [Unknown]
  - Incontinence [Unknown]
  - Gait disturbance [Recovering/Resolving]
  - Hallucination [Unknown]
  - Dyskinesia [Unknown]
  - Drug ineffective [Unknown]
  - Freezing phenomenon [Not Recovered/Not Resolved]
  - Constipation [Not Recovered/Not Resolved]
  - Anxiety [Not Recovered/Not Resolved]
  - Fall [Unknown]
  - Dyskinesia [Not Recovered/Not Resolved]

NARRATIVE: CASE EVENT DATE: 2017
